FAERS Safety Report 7656719-2 (Version None)
Quarter: 2011Q3

REPORT INFORMATION
  Report Type: 
  Country: None (occurrence: None)
  Receive Date: 20110801
  Receipt Date: 20110715
  Transmission Date: 20111222
  Serious: Yes (Hospitalization, Other)
  Sender: FDA-Public Use
  Company Number: 2011MA008962

PATIENT
  Age: 67 Year
  Sex: Female

DRUGS (5)
  1. TOPIRAMATE [Suspect]
     Indication: CONVULSION PROPHYLAXIS
     Dosage: 100 MG, QAM;
  2. CLONAZEPAM [Suspect]
     Indication: ANXIETY
     Dosage: 1 MG, TID,
  3. QUETIAPINE [Suspect]
     Indication: BIPOLAR I DISORDER
     Dosage: 50 MG, HS;
  4. OXCARBAZEPINE [Suspect]
     Indication: CONVULSION PROPHYLAXIS
     Dosage: 150 MG, BID;
  5. PHENYTOIN [Suspect]
     Indication: CONVULSION PROPHYLAXIS
     Dosage: 200 MG, QAM;

REACTIONS (2)
  - ATAXIA [None]
  - TOXICITY TO VARIOUS AGENTS [None]
